FAERS Safety Report 10757165 (Version 3)
Quarter: 2015Q2

REPORT INFORMATION
  Report Type: Spontaneous
  Country: GB (occurrence: None)
  Receive Date: 20150130
  Receipt Date: 20150521
  Transmission Date: 20150821
  Serious: Yes (Death, Other)
  Sender: FDA-Public Use
  Company Number: AMAG201500037

PATIENT

DRUGS (5)
  1. ATORVASTATIN (ATORVASTATIN CALCIUM) [Concomitant]
  2. RIENSO (FERUMOXYTOL) INJECTION [Suspect]
     Active Substance: FERUMOXYTOL
     Indication: IMAGING PROCEDURE
     Route: 042
     Dates: start: 20130702, end: 20130702
  3. BUSCOPAN (HYOSCINE BUTYLBROMIDE) (HYOSCINE BUTYLBROMIDE) [Concomitant]
     Active Substance: BUTYLSCOPOLAMINE
  4. AMLODIPINE (AMLODIINE MALEATE) [Concomitant]
  5. CLOPIDOGREL (CLOPIDOGREL BISULFATE) [Concomitant]

REACTIONS (5)
  - Aortic aneurysm [None]
  - Myocardial ischaemia [None]
  - Cardiac arrest [None]
  - Circulatory collapse [None]
  - Disease progression [None]

NARRATIVE: CASE EVENT DATE: 20150122
